FAERS Safety Report 6302789-3 (Version None)
Quarter: 2009Q3

REPORT INFORMATION
  Report Type: 
  Country: None (occurrence: None)
  Receive Date: 20090810
  Receipt Date: 20090730
  Transmission Date: 20100115
  Serious: Yes (Other)
  Sender: FDA-Public Use
  Company Number: US-JNJFOC-20090700306

PATIENT
  Sex: Female

DRUGS (13)
  1. REMICADE [Suspect]
     Route: 042
  2. REMICADE [Suspect]
     Indication: RHEUMATOID ARTHRITIS
     Route: 042
  3. PLAQUENIL [Concomitant]
  4. CALCIUM [Concomitant]
  5. CLOZAPINE [Concomitant]
  6. VITAMIN [Concomitant]
  7. FOLIC ACID [Concomitant]
  8. PREDNISONE TAB [Concomitant]
  9. NEXIUM [Concomitant]
  10. DETROL [Concomitant]
  11. LIPITOR [Concomitant]
  12. ZOLOFT [Concomitant]
  13. HYDROCHLOROTHIAZIDE [Concomitant]

REACTIONS (12)
  - DIZZINESS [None]
  - DYSPNOEA [None]
  - ERYTHEMA [None]
  - FEELING HOT [None]
  - FLUSHING [None]
  - INFUSION RELATED REACTION [None]
  - NAUSEA [None]
  - PARAESTHESIA [None]
  - PARESIS [None]
  - RESPIRATORY DISTRESS [None]
  - RETCHING [None]
  - VOMITING [None]
